FAERS Safety Report 10070862 (Version 1)
Quarter: 2014Q2

REPORT INFORMATION
  Report Type: Report from Study
  Country: US (occurrence: US)
  Receive Date: 20140410
  Receipt Date: 20140410
  Transmission Date: 20141212
  Serious: Yes (Other)
  Sender: FDA-Public Use
  Company Number: US-ALEXION PHARMACEUTICALS INC.-A200800700

PATIENT
  Age: 52 Year
  Sex: Male

DRUGS (2)
  1. SOLIRIS [Suspect]
     Indication: PAROXYSMAL NOCTURNAL HAEMOGLOBINURIA
     Dosage: UNK
     Route: 042
  2. TYLENOL                            /00020001/ [Suspect]
     Indication: PYREXIA
     Dosage: UNK
     Dates: start: 20080526

REACTIONS (3)
  - Nausea [Unknown]
  - Body temperature increased [Recovered/Resolved]
  - Headache [Unknown]
